FAERS Safety Report 8538920-9 (Version None)
Quarter: 2012Q3

REPORT INFORMATION
  Report Type: 
  Country: None (occurrence: None)
  Receive Date: 20120726
  Receipt Date: 20120717
  Transmission Date: 20120928
  Serious: Yes (Other)
  Sender: FDA-Public Use
  Company Number: NZ-BRISTOL-MYERS SQUIBB COMPANY-16785537

PATIENT
  Age: 25 Year
  Sex: Female

DRUGS (5)
  1. LEVOTHYROXINE SODIUM [Suspect]
  2. CLOZAPINE [Suspect]
  3. ABILIFY [Suspect]
  4. METFORMIN HCL [Suspect]
  5. FLUOXETINE [Suspect]

REACTIONS (4)
  - PREGNANCY [None]
  - POLYHYDRAMNIOS [None]
  - WEIGHT INCREASED [None]
  - DIABETES MELLITUS [None]
